FAERS Safety Report 17343165 (Version 3)
Quarter: 2020Q2

REPORT INFORMATION
  Report Type: Spontaneous
  Country: US (occurrence: US)
  Receive Date: 20200129
  Receipt Date: 20200512
  Transmission Date: 20200713
  Serious: No
  Sender: FDA-Public Use
  Company Number: US-VERTEX PHARMACEUTICALS-2020-001275

PATIENT
  Sex: Male
  Weight: 103 kg

DRUGS (2)
  1. PULMOZYME [Concomitant]
     Active Substance: DORNASE ALFA
  2. TRIKAFTA [Suspect]
     Active Substance: ELEXACAFTOR\IVACAFTOR\TEZACAFTOR
     Indication: CYSTIC FIBROSIS
     Dosage: TWO TABS (EACH CONTAINING ELEXA 100 MG, TEZA 50 MG AND IVA 75 MG) AM AND 150 MG IVA, PM
     Route: 048
     Dates: start: 202001

REACTIONS (2)
  - Diarrhoea [Unknown]
  - Cough [Unknown]
